FAERS Safety Report 6748491-5 (Version None)
Quarter: 2010Q2

REPORT INFORMATION
  Report Type: 
  Country: None (occurrence: None)
  Receive Date: 20100527
  Receipt Date: 20100527
  Transmission Date: 20101027
  Serious: Yes (Hospitalization)
  Sender: FDA-Public Use
  Company Number: None

PATIENT
  Sex: Female
  Weight: 62.7 kg

DRUGS (1)
  1. MEMANTINE HCL [Suspect]
     Dosage: 1250 MG

REACTIONS (3)
  - ABDOMINAL DISCOMFORT [None]
  - CONSTIPATION [None]
  - EAR PAIN [None]
